FAERS Safety Report 8832168 (Version 3)
Quarter: 2013Q3

REPORT INFORMATION
  Report Type: Report from Study
  Country: MX (occurrence: MX)
  Receive Date: 20121009
  Receipt Date: 20130708
  Transmission Date: 20140515
  Serious: Yes (Other)
  Sender: FDA-Public Use
  Company Number: MX-ROCHE-1130529

PATIENT
  Age: 52 Year
  Sex: Female
  Weight: 100 kg

DRUGS (5)
  1. TRASTUZUMAB [Suspect]
     Indication: BREAST CANCER
     Route: 042
     Dates: start: 20120508, end: 20130514
  2. LEVOTHYROXINE [Concomitant]
     Route: 048
  3. ZOFRAN [Concomitant]
     Route: 042
     Dates: start: 20120508
  4. DEXAMETHASONE [Concomitant]
     Route: 042
     Dates: start: 20120508
  5. ENALAPRIL [Concomitant]
     Indication: HYPERTENSION
     Route: 048
     Dates: start: 20120508

REACTIONS (20)
  - Dry skin [Recovering/Resolving]
  - Blood pressure fluctuation [Not Recovered/Not Resolved]
  - Asthenia [Recovering/Resolving]
  - Bone pain [Recovering/Resolving]
  - Fatigue [Recovering/Resolving]
  - Fatigue [Unknown]
  - Insomnia [Not Recovered/Not Resolved]
  - Oedema peripheral [Unknown]
  - Stomatitis [Unknown]
  - Agitation [Unknown]
  - Nausea [Recovering/Resolving]
  - Diarrhoea [Recovered/Resolved]
  - Diarrhoea [Not Recovered/Not Resolved]
  - Epistaxis [Recovered/Resolved]
  - Skin disorder [Not Recovered/Not Resolved]
  - Amnesia [Not Recovered/Not Resolved]
  - Gastritis [Recovering/Resolving]
  - Tooth fracture [Unknown]
  - Myalgia [Unknown]
  - Irritability [Unknown]
